FAERS Safety Report 13689678 (Version 5)
Quarter: 2017Q3

REPORT INFORMATION
  Report Type: Spontaneous
  Country: JP (occurrence: JP)
  Receive Date: 20170626
  Receipt Date: 20170908
  Transmission Date: 20171127
  Serious: Yes (Other)
  Sender: FDA-Public Use
  Company Number: JP-PFIZER INC-2017272147

PATIENT
  Age: 75 Year
  Sex: Male

DRUGS (15)
  1. MICARDIS [Concomitant]
     Active Substance: TELMISARTAN
     Dosage: 20 MG, 1X/DAY
     Route: 048
  2. LANSOPRAZOLE. [Concomitant]
     Active Substance: LANSOPRAZOLE
     Dosage: 15 MG, 1X/DAY
     Route: 048
  3. CARBON [Concomitant]
     Active Substance: ACTIVATED CHARCOAL
     Dosage: 2 G, 3X/DAY
     Route: 048
  4. ISOPIT [Concomitant]
     Dosage: 40 MG, 1X/DAY
     Route: 062
  5. NATEGLINIDE. [Concomitant]
     Active Substance: NATEGLINIDE
     Dosage: 90 MG, 3X/DAY
     Route: 048
  6. BAYASPIRIN [Concomitant]
     Active Substance: ASPIRIN
     Dosage: 100 MG, 1X/DAY
     Route: 048
  7. URIEF [Concomitant]
     Active Substance: SILODOSIN
     Dosage: 2 MG, 2X/DAY
     Route: 048
  8. LYRICA [Suspect]
     Active Substance: PREGABALIN
     Dosage: 75 MG, 2X/DAY
     Route: 048
     Dates: end: 20151208
  9. PITAVASTATIN. [Concomitant]
     Active Substance: PITAVASTATIN CALCIUM
     Dosage: 1 MG, 1X/DAY
     Route: 048
  10. DIART [Concomitant]
     Active Substance: AZOSEMIDE
     Dosage: 60 MG, 1X/DAY
     Route: 048
  11. MAGMITT [Concomitant]
     Active Substance: MAGNESIUM OXIDE
     Dosage: 330 MG, 2X/DAY
     Route: 048
  12. SARPOGRELATE HYDROCHLORIDE [Concomitant]
     Active Substance: SARPOGRELATE HYDROCHLORIDE
     Dosage: 100 MG, 3X/DAY
     Route: 048
  13. ALLOPURINOL. [Concomitant]
     Active Substance: ALLOPURINOL
     Dosage: 100 MG, 1X/DAY
     Route: 048
  14. AMLODIPINE [Concomitant]
     Active Substance: AMLODIPINE BESYLATE
     Dosage: 2.5 MG, 1X/DAY
     Route: 048
  15. ARGAMATE [Concomitant]
     Active Substance: CALCIUM POLYSTYRENE SULFONATE
     Dosage: 5 MG, 3X/DAY
     Route: 048

REACTIONS (7)
  - Agitation [Not Recovered/Not Resolved]
  - Dementia [Recovered/Resolved]
  - Urinary retention [Recovered/Resolved]
  - Gait disturbance [Recovered/Resolved]
  - Amimia [Recovered/Resolved]
  - Fall [Recovered/Resolved]
  - Drug interaction [Recovered/Resolved]

NARRATIVE: CASE EVENT DATE: 201510
